FAERS Safety Report 20518441 (Version 3)
Quarter: 2022Q1

REPORT INFORMATION
  Report Type: Spontaneous
  Country: US (occurrence: US)
  Receive Date: 20220225
  Receipt Date: 20220307
  Transmission Date: 20220423
  Serious: No
  Sender: FDA-Public Use
  Company Number: US-SANOFI-00977423

PATIENT
  Age: 69 Year
  Sex: Female

DRUGS (1)
  1. SOLIQUA 100/33 [Suspect]
     Active Substance: INSULIN GLARGINE\LIXISENATIDE
     Indication: Type 2 diabetes mellitus
     Dosage: 22 IU, QD

REACTIONS (7)
  - Injection site pain [Unknown]
  - Peripheral swelling [Unknown]
  - Diabetic neuropathy [Unknown]
  - Pain in extremity [Unknown]
  - Oedema peripheral [Unknown]
  - Ill-defined disorder [Unknown]
  - Device operational issue [Unknown]
